FAERS Safety Report 9218264 (Version 1)
Quarter: 2013Q2

REPORT INFORMATION
  Report Type: Spontaneous
  Country: US (occurrence: US)
  Receive Date: 20130409
  Receipt Date: 20130409
  Transmission Date: 20140414
  Serious: Yes (Other)
  Sender: FDA-Public Use
  Company Number: US-AMGEN-USASP2013023986

PATIENT
  Age: 45 Year
  Sex: Female

DRUGS (1)
  1. ENBREL [Suspect]
     Indication: RHEUMATOID ARTHRITIS
     Dosage: 50 MG, QWK
     Dates: start: 20130301

REACTIONS (5)
  - Deafness transitory [Recovered/Resolved]
  - Tympanic membrane disorder [Recovered/Resolved]
  - Hearing impaired [Recovered/Resolved]
  - Eustachian tube dysfunction [Recovered/Resolved]
  - Sinusitis [Not Recovered/Not Resolved]
